FAERS Safety Report 4500662-4 (Version None)
Quarter: 2004Q4

REPORT INFORMATION
  Report Type: 
  Country: None (occurrence: None)
  Receive Date: 20041112
  Receipt Date: 20041112
  Transmission Date: 20050328
  Serious: Yes (Hospitalization)
  Sender: FDA-Public Use
  Company Number: None

PATIENT
  Age: 79 Year
  Sex: Male
  Weight: 55 kg

DRUGS (12)
  1. WARFARIN SODIUM [Suspect]
     Indication: CARDIAC VALVE DISEASE
     Dosage: 5 MG ALT 2.5 MG DAILY CHRONIC
  2. WARFARIN SODIUM [Suspect]
     Indication: PROPHYLAXIS
     Dosage: 5 MG ALT 2.5 MG DAILY CHRONIC
  3. LASIX [Concomitant]
  4. LANOXIN [Concomitant]
  5. COZAAR [Concomitant]
  6. TEMAZEPAM [Concomitant]
  7. NEXIUM [Concomitant]
  8. ALPRAZOLAM [Concomitant]
  9. METHADONE [Concomitant]
  10. ZOLOFT [Concomitant]
  11. POTASSIUM [Concomitant]
  12. TIZANIDINE [Concomitant]

REACTIONS (5)
  - CEREBRAL HAEMORRHAGE [None]
  - DIZZINESS [None]
  - HEADACHE [None]
  - HYPERTENSION [None]
  - INTERNATIONAL NORMALISED RATIO INCREASED [None]
